FAERS Safety Report 5027837-2 (Version None)
Quarter: 2006Q2

REPORT INFORMATION
  Report Type: 
  Country: None (occurrence: None)
  Receive Date: 20060501
  Receipt Date: 20060313
  Transmission Date: 20061013
  Serious: Yes (Other)
  Sender: FDA-Public Use
  Company Number: 200612456US

PATIENT
  Age: 47 Year
  Sex: Male

DRUGS (9)
  1. KETEK [Suspect]
     Indication: COUGH
     Dosage: 800 MG QD PO
     Route: 048
     Dates: start: 20060312, end: 20060312
  2. KETEK [Suspect]
     Indication: PYREXIA
     Dosage: 800 MG QD PO
     Route: 048
     Dates: start: 20060312, end: 20060312
  3. ACETYLSALICYLIC ACID SRT [Concomitant]
  4. LAMOTRIGINE (LAMICTAL ^BURROUGHS WELLCOME^) [Concomitant]
  5. METHYLPHENIDATE HYDROCHLORIDE (CONCERTA) [Concomitant]
  6. INSULIN [Concomitant]
  7. TUSSIONEX [Concomitant]
  8. LORATADINE (CLARITIN) [Concomitant]
  9. VYTORIN [Concomitant]

REACTIONS (4)
  - ASTHENIA [None]
  - LOSS OF CONSCIOUSNESS [None]
  - MENTAL IMPAIRMENT [None]
  - VISION BLURRED [None]
